FAERS Safety Report 10561438 (Version 6)
Quarter: 2015Q1

REPORT INFORMATION
  Report Type: Spontaneous
  Country: US (occurrence: US)
  Receive Date: 20141103
  Receipt Date: 20150317
  Transmission Date: 20150720
  Serious: Yes (Hospitalization, Other)
  Sender: FDA-Public Use
  Company Number: US-PFIZER INC-2014302414

PATIENT
  Age: 33 Year
  Sex: Female
  Weight: 93 kg

DRUGS (23)
  1. PHENYTOIN. [Suspect]
     Active Substance: PHENYTOIN
     Dosage: UNK
  2. DIOVAN [Concomitant]
     Active Substance: VALSARTAN
     Dosage: 80 MG, (1/2 OF 160 MG TAB) AT BEDTIME
  3. DILANTIN [Suspect]
     Active Substance: PHENYTOIN
     Dosage: 400 MG, DAILY AT BEDTIME
     Dates: start: 2000
  4. SIMVASTATIN. [Concomitant]
     Active Substance: SIMVASTATIN
     Dosage: 40 MG, DAILY AT BEDTIME
  5. LAMOTRIGINE. [Suspect]
     Active Substance: LAMOTRIGINE
     Indication: SEIZURE
     Dosage: 250 MG, 2X/DAY
     Route: 048
  6. VITAMIN D2 [Concomitant]
     Active Substance: ERGOCALCIFEROL
  7. VITAMIN B12 [Concomitant]
     Active Substance: CYANOCOBALAMIN
  8. SERTRALINE [Concomitant]
     Active Substance: SERTRALINE HYDROCHLORIDE
     Indication: DEPRESSION
     Dosage: 50 MG, 1X/DAY
  9. DILANTIN [Suspect]
     Active Substance: PHENYTOIN
     Indication: SEIZURE
     Dosage: 100 MG, UNK
  10. DILANTIN [Suspect]
     Active Substance: PHENYTOIN
     Dosage: 400 MG, UNK
  11. PHENYTOIN. [Suspect]
     Active Substance: PHENYTOIN
     Indication: SEIZURE
     Dosage: UNK
     Dates: start: 2000
  12. PHENYTOIN. [Suspect]
     Active Substance: PHENYTOIN
     Dosage: UNK
     Dates: start: 2004
  13. PHENOBARBITAL. [Suspect]
     Active Substance: PHENOBARBITAL
     Indication: SEIZURE
     Dosage: 97.3 MG, DAILY
     Route: 048
  14. PHENOBARBITAL. [Suspect]
     Active Substance: PHENOBARBITAL
     Dosage: ADDED ANOTHER 100MG OF PHENOBARBITAL
     Route: 048
  15. PHENOBARBITAL. [Suspect]
     Active Substance: PHENOBARBITAL
     Dosage: ADDED ANOTHER MG OF PHENOBARBITAL
     Route: 048
     Dates: start: 2000
  16. LANTUS [Concomitant]
     Active Substance: INSULIN GLARGINE
     Dosage: 24 IU, DAILY AT NIGHT
  17. PHENYTOIN. [Suspect]
     Active Substance: PHENYTOIN
     Dosage: UNK, 2X/DAY
  18. LAMOTRIGINE. [Suspect]
     Active Substance: LAMOTRIGINE
     Indication: SEIZURE
     Dosage: UNK
     Dates: start: 2000
  19. LAMICTAL [Concomitant]
     Active Substance: LAMOTRIGINE
     Indication: SEIZURE
     Dosage: 250 MG, 2X/DAY
     Dates: start: 1998
  20. COUMADIN [Concomitant]
     Active Substance: WARFARIN SODIUM
     Indication: PERIPHERAL ARTERY THROMBOSIS
     Dosage: 7MG ONCE DAILY ON MONDAY, WEDNESDAY, FRIDAY AND SUNDAY, 5MG ONCE DAILY ON TUESDAY, THURSDAY AND SATU
  21. INSULIN [Concomitant]
     Active Substance: INSULIN NOS
  22. PHENOBARBITAL. [Suspect]
     Active Substance: PHENOBARBITAL
     Dosage: LESS THAN 100 MG
  23. NOVOLOG [Concomitant]
     Active Substance: INSULIN ASPART
     Dosage: UNK IU, 3X/DAY (10 UNITS BEFORE BREAKFAST, 12 UNITS BEFORE LUNCH, AND 14 UNITS BEFORE DINNER)

REACTIONS (6)
  - Seizure [Recovered/Resolved]
  - Urinary incontinence [Unknown]
  - Peripheral artery thrombosis [Unknown]
  - Urticaria [Not Recovered/Not Resolved]
  - Drug ineffective [Not Recovered/Not Resolved]
  - Depression [Unknown]

NARRATIVE: CASE EVENT DATE: 2000
